APPROVED DRUG PRODUCT: LEVALBUTEROL HYDROCHLORIDE
Active Ingredient: LEVALBUTEROL HYDROCHLORIDE
Strength: EQ 0.25% BASE
Dosage Form/Route: SOLUTION;INHALATION
Application: A200875 | Product #001 | TE Code: AN
Applicant: TEVA PARENTERAL MEDICINES INC
Approved: Sep 11, 2014 | RLD: No | RS: No | Type: RX